FAERS Safety Report 4851872-8 (Version None)
Quarter: 2005Q4

REPORT INFORMATION
  Report Type: 
  Country: None (occurrence: None)
  Receive Date: 20051125
  Receipt Date: 20050221
  Transmission Date: 20060501
  Serious: No
  Sender: FDA-Public Use
  Company Number: 2005035036

PATIENT
  Age: 64 Year
  Sex: Male
  Weight: 72.5755 kg

DRUGS (1)
  1. TIKOSYN [Suspect]
     Indication: ATRIAL FIBRILLATION
     Dosage: (2 IN 1 D), ORAL
     Route: 048
     Dates: start: 20050201

REACTIONS (2)
  - ABDOMINAL PAIN [None]
  - ATRIAL FIBRILLATION [None]
